FAERS Safety Report 21262963 (Version 1)
Quarter: 2022Q3

REPORT INFORMATION
  Report Type: Spontaneous
  Country: DE (occurrence: DE)
  Receive Date: 20220828
  Receipt Date: 20220828
  Transmission Date: 20221027
  Serious: Yes (Hospitalization, Other)
  Sender: FDA-Public Use
  Company Number: DE-NOVARTISPH-NVSC2022DE180500

PATIENT
  Age: 67 Year
  Sex: Female

DRUGS (8)
  1. CEFUROXIME [Suspect]
     Active Substance: CEFUROXIME
     Indication: Device related infection
     Dosage: UNK
     Route: 065
  2. MEROPENEM [Suspect]
     Active Substance: MEROPENEM
     Indication: Device related infection
     Dosage: UNK
     Route: 065
  3. MEROPENEM [Suspect]
     Active Substance: MEROPENEM
     Indication: Antibiotic therapy
  4. CEFAZOLIN [Suspect]
     Active Substance: CEFAZOLIN
     Indication: Device related infection
     Dosage: UNK
     Route: 065
  5. CEFAZOLIN [Suspect]
     Active Substance: CEFAZOLIN
     Indication: Antibiotic therapy
  6. FLUCLOXACILLIN [Suspect]
     Active Substance: FLUCLOXACILLIN
     Indication: Device related infection
     Dosage: UNK
     Route: 065
  7. HYDROXYETHYLCELLULOSE [Concomitant]
     Indication: Vehicle solution use
     Dosage: UNK (40ML SNIPHA-360-BACTERIOPHAGE INCORPORATED IN 15.8% HYETELLOSE GEL TO PLACE STENT)
     Route: 065
  8. SODIUM CHLORIDE [Concomitant]
     Active Substance: SODIUM CHLORIDE
     Indication: Vehicle solution use
     Dosage: UNK (20ML SNIPHA-360-BACTERIOPHAGE WAS DILUTED IN 100ML 0.9% SODIUM CHLORIDE FOR APPLIED TO IN)
     Route: 065

REACTIONS (2)
  - Vascular device infection [Recovered/Resolved]
  - Drug ineffective [Unknown]
